FAERS Safety Report 11127233 (Version 1)
Quarter: 2015Q2

REPORT INFORMATION
  Report Type: Spontaneous
  Country: US (occurrence: US)
  Receive Date: 20150521
  Receipt Date: 20150521
  Transmission Date: 20150821
  Serious: No
  Sender: FDA-Public Use
  Company Number: US-AMGEN-USASP2015046523

PATIENT

DRUGS (1)
  1. ENBREL [Suspect]
     Active Substance: ETANERCEPT
     Indication: EXPOSURE DURING PREGNANCY
     Dosage: 1 VIAL, WEEKLY
     Route: 064
     Dates: start: 201210

REACTIONS (2)
  - Exposure during breast feeding [Unknown]
  - Gastrooesophageal reflux disease [Unknown]
